FAERS Safety Report 24204590 (Version 1)
Quarter: 2024Q3

REPORT INFORMATION
  Report Type: Report from Study
  Country: US (occurrence: None)
  Receive Date: 20240813
  Receipt Date: 20240813
  Transmission Date: 20241016
  Serious: Yes (Hospitalization, Other)
  Sender: ASTRAZENECA
  Company Number: 2024A178885

PATIENT
  Sex: Male

DRUGS (1)
  1. CALQUENCE [Suspect]
     Active Substance: ACALABRUTINIB
     Indication: Chronic lymphocytic leukaemia
     Route: 048
     Dates: start: 20230414

REACTIONS (6)
  - Bradycardia [Unknown]
  - Haematuria [Unknown]
  - Fall [Unknown]
  - Head injury [Unknown]
  - Lip injury [Unknown]
  - Haemorrhage [Unknown]
